FAERS Safety Report 13501030 (Version 1)
Quarter: 2017Q2

REPORT INFORMATION
  Report Type: Spontaneous
  Country: US (occurrence: US)
  Receive Date: 20170501
  Receipt Date: 20170501
  Transmission Date: 20170830
  Serious: No
  Sender: FDA-Public Use
  Company Number: US-ROCHE-1860812

PATIENT
  Sex: Female

DRUGS (10)
  1. ESBRIET [Suspect]
     Active Substance: PIRFENIDONE
     Indication: PULMONARY FIBROSIS
     Route: 048
     Dates: start: 20161119
  2. LORAZEPAM. [Concomitant]
     Active Substance: LORAZEPAM
  3. DOCETAXEL. [Concomitant]
     Active Substance: DOCETAXEL
  4. MONTELUKAST [Concomitant]
     Active Substance: MONTELUKAST SODIUM
  5. ALBUTEROL. [Concomitant]
     Active Substance: ALBUTEROL
  6. SINGULAIR [Concomitant]
     Active Substance: MONTELUKAST SODIUM
  7. FLOVENT [Concomitant]
     Active Substance: FLUTICASONE PROPIONATE
  8. ATIVAN [Concomitant]
     Active Substance: LORAZEPAM
  9. TEGRETOL [Concomitant]
     Active Substance: CARBAMAZEPINE
  10. PROAIR HFA [Concomitant]
     Active Substance: ALBUTEROL SULFATE

REACTIONS (7)
  - Abdominal discomfort [Unknown]
  - Productive cough [Unknown]
  - Epistaxis [Unknown]
  - Weight decreased [Unknown]
  - Lung infection [Unknown]
  - Pneumonia [Unknown]
  - Viral upper respiratory tract infection [Unknown]
